FAERS Safety Report 24364574 (Version 1)
Quarter: 2024Q3

REPORT INFORMATION
  Report Type: Spontaneous
  Country: JP (occurrence: JP)
  Receive Date: 20240926
  Receipt Date: 20240926
  Transmission Date: 20241017
  Serious: Yes (Other)
  Sender: PFIZER
  Company Number: JP-PFIZER INC-PV202400123270

PATIENT

DRUGS (1)
  1. ELREXFIO [Suspect]
     Active Substance: ELRANATAMAB-BCMM
     Dosage: 76 MG, DAILY
     Route: 058

REACTIONS (2)
  - Cytomegalovirus infection [Not Recovered/Not Resolved]
  - Neoplasm progression [Not Recovered/Not Resolved]
